FAERS Safety Report 10709161 (Version 1)
Quarter: 2015Q1

REPORT INFORMATION
  Report Type: Spontaneous
  Country: VN (occurrence: VN)
  Receive Date: 20150114
  Receipt Date: 20150114
  Transmission Date: 20150721
  Serious: Yes (Other)
  Sender: FDA-Public Use
  Company Number: VN-009507513-1501VNM003711

PATIENT
  Age: 86 Year
  Sex: Female

DRUGS (1)
  1. FOSAMAX PLUS D [Suspect]
     Active Substance: ALENDRONATE SODIUM\CHOLECALCIFEROL
     Dosage: 1 DF, 1 TABLET QW, STRENGTH: 2800 (UNIT NOT SPECIFIED)
     Route: 048
     Dates: start: 20140110

REACTIONS (5)
  - Neoplasm malignant [Not Recovered/Not Resolved]
  - Agitation [Not Recovered/Not Resolved]
  - Osteoporosis [Not Recovered/Not Resolved]
  - Abdominal pain upper [Not Recovered/Not Resolved]
  - Dyspepsia [Not Recovered/Not Resolved]

NARRATIVE: CASE EVENT DATE: 2014
